FAERS Safety Report 14764206 (Version 1)
Quarter: 2018Q2

REPORT INFORMATION
  Report Type: Spontaneous
  Country: CA (occurrence: CA)
  Receive Date: 20180416
  Receipt Date: 20180416
  Transmission Date: 20180711
  Serious: Yes (Other)
  Sender: FDA-Public Use
  Company Number: CA-PFIZER INC-2018153863

PATIENT
  Age: 63 Year
  Sex: Female

DRUGS (9)
  1. HYDROXYCHLOROQUINE [Suspect]
     Active Substance: HYDROXYCHLOROQUINE
     Dosage: 200 MG, UNK
     Route: 065
  2. ORENCIA [Suspect]
     Active Substance: ABATACEPT
     Dosage: 500 MG, UNK
     Route: 065
  3. METHOTREXATE SODIUM. [Suspect]
     Active Substance: METHOTREXATE SODIUM
     Dosage: 12.5 MG, UNK
     Route: 065
  4. ANAKINRA [Suspect]
     Active Substance: ANAKINRA
     Dosage: UNK
     Route: 058
  5. APO-LEFLUNOMIDE [Suspect]
     Active Substance: LEFLUNOMIDE
     Dosage: 20 MG, UNK
     Route: 065
  6. ENBREL [Suspect]
     Active Substance: ETANERCEPT
     Dosage: 50 MG, QWK
     Route: 065
  7. METHOTREXATE SODIUM. [Suspect]
     Active Substance: METHOTREXATE SODIUM
     Dosage: UNK
     Route: 048
  8. ACTEMRA [Suspect]
     Active Substance: TOCILIZUMAB
     Dosage: UNK
     Route: 065
  9. HUMIRA [Suspect]
     Active Substance: ADALIMUMAB
     Dosage: 40 MG, UNK
     Route: 058

REACTIONS (10)
  - Drug intolerance [Unknown]
  - Cutaneous vasculitis [Unknown]
  - Rheumatoid factor positive [Unknown]
  - Drug ineffective [Unknown]
  - Oral mucosal exfoliation [Unknown]
  - Osteoarthritis [Unknown]
  - Synovitis [Unknown]
  - Rheumatoid arthritis [Unknown]
  - Secretion discharge [Unknown]
  - Rash [Unknown]
